FAERS Safety Report 6250233-7 (Version None)
Quarter: 2009Q2

REPORT INFORMATION
  Report Type: 
  Country: None (occurrence: None)
  Receive Date: 20090630
  Receipt Date: 20080512
  Transmission Date: 20091009
  Serious: Yes (Other)
  Sender: FDA-Public Use
  Company Number: US-ASTRAZENECA-2008UW04291

PATIENT
  Age: 424 Month
  Sex: Female
  Weight: 65.8 kg

DRUGS (17)
  1. SEROQUEL [Suspect]
     Indication: ANXIETY
     Dosage: 200 MG TO 400 MG
     Route: 048
     Dates: start: 20020101, end: 20070101
  2. SEROQUEL [Suspect]
     Indication: DEPRESSION
     Dosage: 200 MG TO 400 MG
     Route: 048
     Dates: start: 20020101, end: 20070101
  3. SEROQUEL [Suspect]
     Indication: BIPOLAR DISORDER
     Dosage: 200 MG TO 400 MG
     Route: 048
     Dates: start: 20020101, end: 20070101
  4. SEROQUEL [Suspect]
     Route: 048
     Dates: start: 20071017
  5. SEROQUEL [Suspect]
     Route: 048
     Dates: start: 20071017
  6. SEROQUEL [Suspect]
     Route: 048
     Dates: start: 20071017
  7. VICODIN [Concomitant]
     Route: 048
     Dates: start: 20070822
  8. ADVAIR HFA [Concomitant]
     Dosage: STRENGTH: 250 MCG/50 MCG; TWO TIMES A DAY
     Route: 045
     Dates: start: 20050721
  9. MOTRIN [Concomitant]
     Dosage: 1800 MG - 2400 MG DAILY
     Route: 048
     Dates: start: 20050829
  10. FLEXERIL [Concomitant]
     Route: 048
     Dates: start: 20060912
  11. DILANTIN [Concomitant]
     Route: 048
     Dates: start: 20070417
  12. CLONAZEPAM [Concomitant]
     Route: 048
     Dates: start: 20070411
  13. GEODON [Concomitant]
     Route: 048
     Dates: start: 20070717
  14. GABAPENTIN [Concomitant]
     Route: 048
     Dates: start: 20070212
  15. ALPRAZOLAM [Concomitant]
     Route: 048
     Dates: start: 20070403
  16. MIRTAZAPINE [Concomitant]
     Route: 048
     Dates: start: 20070411
  17. FLOVENT [Concomitant]
     Route: 045
     Dates: start: 20070822

REACTIONS (3)
  - DIABETES MELLITUS [None]
  - NEUROPATHY PERIPHERAL [None]
  - TYPE 2 DIABETES MELLITUS [None]
